FAERS Safety Report 8904439 (Version 1)
Quarter: 2012Q4

REPORT INFORMATION
  Report Type: 
  Country: AU (occurrence: AU)
  Receive Date: 20121112
  Receipt Date: 20121112
  Transmission Date: 20130627
  Serious: Yes (Death)
  Sender: FDA-Public Use
  Company Number: AU-009507513-1211AUS002456

PATIENT
  Sex: Male

DRUGS (1)
  1. AVANZA [Suspect]
     Indication: SLEEP DISORDER
     Dosage: 30 mg, qd
     Route: 048
     Dates: start: 20110623

REACTIONS (1)
  - Completed suicide [Fatal]
